FAERS Safety Report 6228371-4 (Version None)
Quarter: 2009Q2

REPORT INFORMATION
  Report Type: 
  Country: None (occurrence: None)
  Receive Date: 20090612
  Receipt Date: 20090604
  Transmission Date: 20091009
  Serious: Yes (Hospitalization)
  Sender: FDA-Public Use
  Company Number: US-ELI_LILLY_AND_COMPANY-US200906001308

PATIENT
  Sex: Female

DRUGS (2)
  1. HUMALOG [Suspect]
     Dosage: 6 U, EACH EVENING
  2. NOVOLIN [Concomitant]

REACTIONS (9)
  - AGITATION [None]
  - ANOREXIA [None]
  - CARPAL TUNNEL SYNDROME [None]
  - ESCHERICHIA INFECTION [None]
  - HYPOGLYCAEMIA [None]
  - MEDICATION ERROR [None]
  - NEUROPATHY PERIPHERAL [None]
  - SLEEP APNOEA SYNDROME [None]
  - URINARY TRACT INFECTION [None]
